FAERS Safety Report 9409034 (Version 2)
Quarter: 2013Q4

REPORT INFORMATION
  Report Type: Spontaneous
  Country: US (occurrence: US)
  Receive Date: 20130719
  Receipt Date: 20131216
  Transmission Date: 20140711
  Serious: Yes (Other)
  Sender: FDA-Public Use
  Company Number: US-TEVA-413944USA

PATIENT
  Age: 40 Year
  Sex: Female
  Weight: 72.19 kg

DRUGS (3)
  1. PARAGARD 380A [Suspect]
     Indication: CONTRACEPTION
     Route: 015
     Dates: start: 20130529, end: 20130617
  2. LEXAPRO [Concomitant]
     Indication: ANXIETY
  3. WELLBUTRIN XL [Concomitant]
     Indication: DEPRESSION

REACTIONS (2)
  - Device dislocation [Recovered/Resolved]
  - Pain [Recovered/Resolved]
